FAERS Safety Report 6462165-X (Version None)
Quarter: 2009Q4

REPORT INFORMATION
  Report Type: 
  Country: None (occurrence: None)
  Receive Date: 20091130
  Receipt Date: 20091028
  Transmission Date: 20100525
  Serious: Yes (Other)
  Sender: FDA-Public Use
  Company Number: IT-BAYER-200939471GPV

PATIENT
  Age: 70 Year
  Sex: Male

DRUGS (13)
  1. HELIXATE [Suspect]
     Indication: FACTOR VIII DEFICIENCY
     Route: 042
     Dates: start: 20050101, end: 20050101
  2. HELIXATE [Suspect]
     Route: 042
     Dates: start: 20050401, end: 20050401
  3. HELIXATE [Suspect]
     Dosage: INFUSION WAS STOPPED AFTER A FEW ML
     Route: 042
     Dates: start: 20070401, end: 20070401
  4. HELIXATE [Suspect]
     Route: 042
     Dates: start: 20050401, end: 20050401
  5. HELIXATE [Suspect]
     Dosage: TOTAL OF 18 DAYS OF EXPOSURE
     Route: 065
     Dates: start: 19960101, end: 20050401
  6. NOVOSEVEN [Concomitant]
     Indication: HAEMARTHROSIS
     Dosage: TOTAL DAILY DOSE: 540 ?G/KG
     Route: 042
     Dates: start: 20070301, end: 20070301
  7. NOVOSEVEN [Concomitant]
     Dosage: TOTAL DAILY DOSE: 270 ?G/KG
     Route: 042
     Dates: start: 20070301, end: 20070301
  8. NOVOSEVEN [Concomitant]
     Route: 065
  9. NOVOSEVEN [Concomitant]
     Dosage: TOTAL DAILY DOSE: 360 ?G/KG
     Route: 042
     Dates: start: 20070301, end: 20070301
  10. NOVOSEVEN [Concomitant]
     Dosage: TOTAL DAILY DOSE: 720 ?G/KG
     Route: 042
     Dates: start: 20070301, end: 20070301
  11. NOVOSEVEN [Concomitant]
     Dosage: TOTAL DAILY DOSE: 720 ?G/KG
     Route: 042
     Dates: start: 20070101, end: 20070101
  12. NOVOSEVEN [Concomitant]
     Dosage: TOTAL DAILY DOSE: 540 ?G/KG
     Route: 042
     Dates: start: 20070101, end: 20070101
  13. HUMATE-P [Concomitant]
     Indication: DRUG USE FOR UNKNOWN INDICATION
     Route: 042
     Dates: start: 20070301, end: 20070301

REACTIONS (4)
  - DUODENAL ULCER HAEMORRHAGE [None]
  - FACTOR VIII INHIBITION [None]
  - HAEMARTHROSIS [None]
  - URTICARIA [None]
